FAERS Safety Report 10568827 (Version 2)
Quarter: 2014Q4

REPORT INFORMATION
  Report Type: Spontaneous
  Country: US (occurrence: US)
  Receive Date: 20141106
  Receipt Date: 20141126
  Transmission Date: 20150529
  Serious: Yes (Hospitalization, Other)
  Sender: FDA-Public Use
  Company Number: US-BRISTOL-MYERS SQUIBB COMPANY-21536511

PATIENT
  Age: 68 Year
  Sex: Female
  Weight: 95.69 kg

DRUGS (3)
  1. LANTUS [Concomitant]
     Active Substance: INSULIN GLARGINE
  2. HUMALOG [Concomitant]
     Active Substance: INSULIN LISPRO
  3. BYETTA [Suspect]
     Active Substance: EXENATIDE
     Indication: TYPE 2 DIABETES MELLITUS
     Dosage: DURATION: ABOUT 5-6 YEARS(DISCONTINUED 2 YERAS)?START 2 YEARS AGO + ONGOING?SYRINGE
     Route: 058

REACTIONS (4)
  - Carpal tunnel syndrome [Not Recovered/Not Resolved]
  - Product quality issue [Unknown]
  - Pancreatitis [Recovered/Resolved]
  - Decreased appetite [Unknown]

NARRATIVE: CASE EVENT DATE: 2012
